FAERS Safety Report 9044221 (Version 1)
Quarter: 2013Q1

REPORT INFORMATION
  Report Type: Report from Study
  Country: US (occurrence: US)
  Receive Date: 20130130
  Receipt Date: 20130130
  Transmission Date: 20140127
  Serious: Yes (Hospitalization)
  Sender: FDA-Public Use
  Company Number: US-ABBOTT-12P-163-0958131-00

PATIENT
  Sex: Male
  Weight: 99.88 kg

DRUGS (7)
  1. HUMIRA 40 MG/0.8 ML PEN [Suspect]
     Indication: CROHN^S DISEASE
     Route: 058
     Dates: start: 2010, end: 201108
  2. HUMIRA 40 MG/0.8 ML PEN [Suspect]
     Route: 058
     Dates: start: 201109, end: 201203
  3. MERCAPTOPURINE [Concomitant]
     Indication: CROHN^S DISEASE
  4. ATENOLOL [Concomitant]
     Indication: HYPERTENSION
  5. CIPRO [Concomitant]
     Indication: CROHN^S DISEASE
     Dates: start: 2010
  6. TINDAMAX [Concomitant]
     Indication: CROHN^S DISEASE
  7. LOTREL [Concomitant]
     Indication: HYPERTENSION

REACTIONS (1)
  - Hip arthroplasty [Recovered/Resolved]
